FAERS Safety Report 8770777 (Version 1)
Quarter: 2012Q4

REPORT INFORMATION
  Report Type: 
  Country: US (occurrence: US)
  Receive Date: 20120906
  Receipt Date: 20120906
  Transmission Date: 20130627
  Serious: Yes (Other)
  Sender: FDA-Public Use
  Company Number: US-COVIDIEN/TYCO HEALTHCARE/MALLINCKRODT-T201203315

PATIENT
  Sex: Male

DRUGS (5)
  1. FENTANYL TRANSDERMAL SYSTEM [Suspect]
     Indication: ARTHRALGIA
     Dosage: 100 ug/hr, UNK
     Route: 062
     Dates: start: 201208
  2. LYRICA [Concomitant]
     Indication: ARTHRALGIA
     Dosage: UNK, bid
     Dates: start: 201208
  3. LORTAB                             /00607101/ [Concomitant]
     Indication: ARTHRALGIA
     Dosage: 10/500, 2 tablets a day
  4. NUCYNTA [Concomitant]
     Indication: ARTHRALGIA
     Dosage: 100 mg, UNK
  5. NUCYNTA [Concomitant]
     Dosage: 50 mg, UNK

REACTIONS (8)
  - Throat tightness [Recovered/Resolved]
  - Heart rate abnormal [Recovered/Resolved]
  - Overdose [Recovered/Resolved]
  - Dyspnoea [Recovered/Resolved]
  - Pyrexia [Recovered/Resolved]
  - Chills [Recovered/Resolved]
  - Rash [Recovered/Resolved]
  - Headache [Unknown]
